FAERS Safety Report 8271995-3 (Version None)
Quarter: 2012Q2

REPORT INFORMATION
  Report Type: 
  Country: None (occurrence: None)
  Receive Date: 20120410
  Receipt Date: 20120402
  Transmission Date: 20120825
  Serious: Yes (Hospitalization)
  Sender: FDA-Public Use
  Company Number: US-BAYER-2012-026113

PATIENT
  Age: 23 Year
  Sex: Female
  Weight: 71.655 kg

DRUGS (14)
  1. SUDAFED 12 HOUR [Concomitant]
     Dosage: 60 MG, UNK
     Route: 048
  2. OXYCODONE HCL AND ACETAMINOPHEN [Concomitant]
  3. M.V.I. [Concomitant]
     Route: 048
  4. MS CONTIN [Concomitant]
  5. TRIAMCINOLONE ACETONIDE [Concomitant]
     Route: 061
  6. NASONEX [Concomitant]
     Route: 045
  7. DULCOLAX [Concomitant]
  8. FLONASE [Concomitant]
  9. YASMIN [Suspect]
     Indication: PREMENSTRUAL SYNDROME
     Dosage: UNK
     Dates: start: 20060101, end: 20080101
  10. YAZ [Suspect]
     Indication: PREMENSTRUAL SYNDROME
     Dosage: UNK
     Dates: start: 20060101, end: 20080101
  11. LORATADINE [Concomitant]
     Route: 048
  12. IBUPROFEN [Concomitant]
     Dosage: 800 MG, TID
  13. PERCOCET [Concomitant]
  14. COLACE [Concomitant]

REACTIONS (6)
  - PSYCHOLOGICAL TRAUMA [None]
  - PAIN [None]
  - PULMONARY EMBOLISM [None]
  - INJURY [None]
  - EMOTIONAL DISTRESS [None]
  - ANXIETY [None]
